FAERS Safety Report 7183952-9 (Version None)
Quarter: 2010Q4

REPORT INFORMATION
  Report Type: 
  Country: None (occurrence: None)
  Receive Date: 20101222
  Receipt Date: 20101210
  Transmission Date: 20110411
  Serious: Yes (Death)
  Sender: FDA-Public Use
  Company Number: ID-ROCHE-748058

PATIENT
  Age: 35 Year
  Sex: Male
  Weight: 75 kg

DRUGS (10)
  1. OSELTAMIVIR [Suspect]
     Indication: AVIAN INFLUENZA
     Route: 065
     Dates: start: 20100826, end: 20100827
  2. LEVOFLOXACIN [Concomitant]
     Dates: start: 20100820, end: 20100822
  3. CEFTRIAXONE [Concomitant]
     Dates: start: 20100822, end: 20100822
  4. MEROPENEM [Concomitant]
     Dates: start: 20100822, end: 20100827
  5. PARACETAMOL [Concomitant]
     Dates: start: 20100820, end: 20100822
  6. DEXAMETHASONE [Concomitant]
     Dates: start: 20100820, end: 20100821
  7. METHYLPREDNISOLONE [Concomitant]
     Dates: start: 20100822, end: 20100823
  8. RANITIDINE [Concomitant]
     Dates: start: 20100820, end: 20100822
  9. ONDANSETRON [Concomitant]
     Dates: start: 20100820, end: 20100822
  10. MIDAZOLAM HCL [Concomitant]
     Dates: start: 20100822, end: 20100827

REACTIONS (1)
  - ACUTE RESPIRATORY DISTRESS SYNDROME [None]
